FAERS Safety Report 7613464 (Version 6)
Quarter: 2013Q4

REPORT INFORMATION
  Report Type: Report from Study
  Country: FR (occurrence: FR)
  Receive Date: 20100930
  Receipt Date: 20131209
  Transmission Date: 20140711
  Serious: Yes (Death, Hospitalization)
  Sender: FDA-Public Use
  Company Number: FR-PFIZER INC-2009304854

PATIENT
  Age: 65 Year
  Sex: Male
  Weight: 80 kg

DRUGS (7)
  1. CAMPTO [Suspect]
     Indication: GLIOBLASTOMA
     Dosage: 250 MG, UNK
     Route: 042
     Dates: start: 20090803, end: 20090814
  2. CAMPTO [Suspect]
     Indication: BRAIN NEOPLASM
  3. AVASTIN [Suspect]
     Indication: GLIOBLASTOMA
     Dosage: 800 MG, UNK
     Route: 042
     Dates: start: 20090803, end: 20090814
  4. AVASTIN [Suspect]
     Indication: BRAIN NEOPLASM
     Dosage: 760 MG, UNK
     Route: 042
     Dates: start: 20091013, end: 20091109
  5. TEMODAL [Suspect]
     Indication: GLIOBLASTOMA
     Dosage: 145 MG, UNK
     Route: 048
     Dates: start: 20091013, end: 20091112
  6. TEMODAL [Suspect]
     Indication: BRAIN NEOPLASM
  7. PREDNISOLONE [Concomitant]
     Indication: ANTIINFLAMMATORY THERAPY
     Dosage: UNK
     Route: 048
     Dates: start: 200906

REACTIONS (6)
  - Gastrointestinal perforation [Fatal]
  - Haemorrhage [Fatal]
  - Large intestinal obstruction [Fatal]
  - Large intestine perforation [Recovered/Resolved]
  - Disease progression [Fatal]
  - Glioblastoma [Fatal]
